FAERS Safety Report 10956919 (Version 1)
Quarter: 2015Q1

REPORT INFORMATION
  Report Type: Report from Study
  Country: JP (occurrence: JP)
  Receive Date: 20150326
  Receipt Date: 20150326
  Transmission Date: 20150721
  Serious: Yes (Hospitalization)
  Sender: FDA-Public Use
  Company Number: JP-EISAI MEDICAL RESEARCH-EC-2015-004209

PATIENT
  Age: 90 Year
  Sex: Female

DRUGS (10)
  1. ARICEPT [Suspect]
     Active Substance: DONEPEZIL HYDROCHLORIDE
     Route: 048
     Dates: start: 20140304, end: 20140312
  2. YOKUKANSAN [Concomitant]
     Active Substance: HERBALS
  3. MASHININGAN [Concomitant]
  4. SIGMART [Concomitant]
     Active Substance: NICORANDIL
  5. ARICEPT [Suspect]
     Active Substance: DONEPEZIL HYDROCHLORIDE
     Indication: DEMENTIA ALZHEIMER^S TYPE
     Route: 048
     Dates: start: 20140204, end: 20140211
  6. KETAS [Concomitant]
     Active Substance: IBUDILAST
  7. SELBEX [Concomitant]
     Active Substance: TEPRENONE
  8. ARICEPT [Suspect]
     Active Substance: DONEPEZIL HYDROCHLORIDE
     Route: 048
     Dates: start: 20140219, end: 20140220
  9. NORVASC [Concomitant]
     Active Substance: AMLODIPINE BESYLATE
  10. BUFFERIN [Concomitant]
     Active Substance: ASPIRIN

REACTIONS (1)
  - Vomiting [Recovered/Resolved]

NARRATIVE: CASE EVENT DATE: 20140312
